FAERS Safety Report 5154484-4 (Version None)
Quarter: 2006Q4

REPORT INFORMATION
  Report Type: 
  Country: None (occurrence: None)
  Receive Date: 20061114
  Receipt Date: 20061103
  Transmission Date: 20070319
  Serious: Yes (Other)
  Sender: FDA-Public Use
  Company Number: HQWYE410103NOV06

PATIENT
  Age: 75 Year
  Sex: Male

DRUGS (4)
  1. CORDARONE [Suspect]
     Dosage: 1400 MG 1X PER 1 WK ORAL; SEE IMAGE
     Route: 048
     Dates: end: 20040101
  2. CORDARONE [Suspect]
     Dosage: 1400 MG 1X PER 1 WK ORAL; SEE IMAGE
     Route: 048
     Dates: start: 20040101
  3. ASPIRIN [Concomitant]
  4. ATENOLOL [Concomitant]

REACTIONS (5)
  - AMNESIA [None]
  - BALANCE DISORDER [None]
  - FALL [None]
  - GAIT DISTURBANCE [None]
  - MUSCULAR WEAKNESS [None]
